FAERS Safety Report 8075990-9 (Version None)
Quarter: 2012Q1

REPORT INFORMATION
  Report Type: 
  Country: None (occurrence: None)
  Receive Date: 20120127
  Receipt Date: 20110214
  Transmission Date: 20120608
  Serious: Yes (Other)
  Sender: FDA-Public Use
  Company Number: US-GLAXOSMITHKLINE-A0913878A

PATIENT
  Age: 59 Year
  Sex: Female

DRUGS (2)
  1. WELLBUTRIN [Suspect]
     Indication: PRODUCT USED FOR UNKNOWN INDICATION
  2. CONCURRENT MEDICATIONS [Concomitant]

REACTIONS (2)
  - MEMORY IMPAIRMENT [None]
  - CONVULSION [None]
